FAERS Safety Report 6532168-5 (Version None)
Quarter: 2010Q1

REPORT INFORMATION
  Report Type: 
  Country: None (occurrence: None)
  Receive Date: 20100108
  Receipt Date: 20091228
  Transmission Date: 20100710
  Serious: Yes (Hospitalization)
  Sender: FDA-Public Use
  Company Number: B0609907A

PATIENT
  Age: 49 Year
  Sex: Male

DRUGS (3)
  1. ZEFFIX [Suspect]
     Indication: HEPATIC CIRRHOSIS
     Dosage: 100MG PER DAY
     Route: 048
     Dates: start: 19990101, end: 20090810
  2. HEPSERA [Suspect]
     Indication: HEPATIC CIRRHOSIS
     Dosage: 10MG PER DAY
     Route: 048
     Dates: start: 20040101
  3. TAKEPRON [Concomitant]
     Dosage: 15MG PER DAY
     Route: 048
     Dates: start: 20050101

REACTIONS (5)
  - DRUG RESISTANCE [None]
  - HEPATITIS B [None]
  - HEPATITIS B DNA INCREASED [None]
  - TRANSAMINASES INCREASED [None]
  - VIRAL HEPATITIS CARRIER [None]
